FAERS Safety Report 5682294-8 (Version None)
Quarter: 2008Q1

REPORT INFORMATION
  Report Type: 
  Country: None (occurrence: None)
  Receive Date: 20080327
  Receipt Date: 20080319
  Transmission Date: 20080703
  Serious: Yes (Other)
  Sender: FDA-Public Use
  Company Number: PHEH2008US01590

PATIENT
  Age: 49 Year
  Sex: Female
  Weight: 92.97 kg

DRUGS (2)
  1. CALCIUM WITH VITAMIN D [Concomitant]
  2. RECLAST [Suspect]
     Indication: OSTEITIS DEFORMANS
     Dosage: 5 MG, ONCE/SINGLE
     Dates: start: 20071221

REACTIONS (6)
  - AGITATION [None]
  - HYPOAESTHESIA [None]
  - HYPOAESTHESIA FACIAL [None]
  - HYPOCALCAEMIA [None]
  - NEUROMYOPATHY [None]
  - PARAESTHESIA [None]
